FAERS Safety Report 10414263 (Version 1)
Quarter: 2014Q3

REPORT INFORMATION
  Report Type: Report from Study
  Country: CN (occurrence: CN)
  Receive Date: 20140828
  Receipt Date: 20140828
  Transmission Date: 20150326
  Serious: Yes (Other)
  Sender: FDA-Public Use
  Company Number: CN-ROCHE-1452290

PATIENT

DRUGS (5)
  1. TOBRAMYCIN EYE DROPS [Concomitant]
     Route: 065
  2. OXYBUPROCAINE HYDROCHLORIDE [Concomitant]
     Indication: ANAESTHESIA
     Route: 065
  3. BEVACIZUMAB [Suspect]
     Active Substance: BEVACIZUMAB
     Indication: AGE-RELATED MACULAR DEGENERATION
     Dosage: DOSE: 0.07 ML (1.75 MG)
     Route: 050
  4. RINGER^S SOLUTION [Concomitant]
     Active Substance: RINGER^S SOLUTION
  5. TOBRAMYCIN AND DEXAMETHASONE [Concomitant]
     Active Substance: DEXAMETHASONE\TOBRAMYCIN
     Dosage: EYE OINTMENT
     Route: 065

REACTIONS (6)
  - Eye pain [Unknown]
  - Off label use [Unknown]
  - Foreign body sensation in eyes [Unknown]
  - Conjunctival hyperaemia [Unknown]
  - Conjunctival haemorrhage [Recovered/Resolved]
  - Intraocular pressure decreased [Recovered/Resolved]
